FAERS Safety Report 10956768 (Version 1)
Quarter: 2015Q1

REPORT INFORMATION
  Report Type: Spontaneous
  Country: US (occurrence: US)
  Receive Date: 20150326
  Receipt Date: 20150326
  Transmission Date: 20150721
  Serious: No
  Sender: FDA-Public Use
  Company Number: US-MYLANLABS-2014M1002028

PATIENT
  Age: 52 Year
  Sex: Male

DRUGS (4)
  1. GABAPENTIN. [Concomitant]
     Active Substance: GABAPENTIN
     Indication: DEPRESSION
     Dosage: 600 MG, 2-3 X DAILY
     Route: 048
  2. EMSAM [Suspect]
     Active Substance: SELEGILINE
     Dosage: 6 MG, QD
     Route: 062
     Dates: start: 201408
  3. EMSAM [Suspect]
     Active Substance: SELEGILINE
     Indication: ANXIETY
  4. EMSAM [Suspect]
     Active Substance: SELEGILINE
     Indication: DEPRESSION

REACTIONS (1)
  - Application site erythema [Not Recovered/Not Resolved]

NARRATIVE: CASE EVENT DATE: 201408
